APPROVED DRUG PRODUCT: MOXIFLOXACIN HYDROCHLORIDE
Active Ingredient: MOXIFLOXACIN HYDROCHLORIDE
Strength: EQ 0.5% BASE
Dosage Form/Route: SOLUTION/DROPS;OPHTHALMIC
Application: A202916 | Product #001
Applicant: EPIC PHARMA LLC
Approved: Nov 9, 2017 | RLD: No | RS: No | Type: DISCN